FAERS Safety Report 14673573 (Version 1)
Quarter: 2018Q1

REPORT INFORMATION
  Report Type: Spontaneous
  Country: IT (occurrence: IT)
  Receive Date: 20180323
  Receipt Date: 20180323
  Transmission Date: 20180509
  Serious: Yes (Other)
  Sender: FDA-Public Use
  Company Number: IT-AUROBINDO-AUR-APL-2018-015770

PATIENT
  Age: 72 Year
  Sex: Female

DRUGS (8)
  1. INSULIN GLARGINE [Suspect]
     Active Substance: INSULIN GLARGINE
     Dosage: 18 INTERNATIONAL UNIT, ONCE A DAY,FORM STRENGTH: 300
     Route: 065
  2. METFORMIN [Suspect]
     Active Substance: METFORMIN HYDROCHLORIDE
     Indication: TYPE 2 DIABETES MELLITUS
     Dosage: 2000 MILLIGRAM, ONCE A DAY
     Route: 065
  3. DEXAMETHASON                       /00016001/ [Suspect]
     Active Substance: DEXAMETHASONE
     Indication: NON-SMALL CELL LUNG CANCER
     Dosage: 8 MILLIGRAM, ONCE A DAY
     Route: 030
  4. JARDIANCE [Suspect]
     Active Substance: EMPAGLIFLOZIN
     Indication: TYPE 2 DIABETES MELLITUS
     Dosage: UNK
     Route: 065
  5. INSULIN GLARGINE [Suspect]
     Active Substance: INSULIN GLARGINE
     Indication: TYPE 2 DIABETES MELLITUS
     Dosage: 14 INTERNATIONAL UNIT, ONCE A DAY,FORM STRENGTH: 300
     Route: 065
     Dates: end: 201708
  6. DEXAMETHASON                       /00016001/ [Suspect]
     Active Substance: DEXAMETHASONE
     Dosage: 4 MILLIGRAM, ONCE A DAY
     Route: 048
     Dates: end: 201704
  7. INSULIN GLARGINE [Suspect]
     Active Substance: INSULIN GLARGINE
     Dosage: 28 INTERNATIONAL UNIT, ONCE A DAY, FORM STRENGTH: 300
     Route: 065
  8. GIOTRIF                            /06508202/ [Suspect]
     Active Substance: AFATINIB DIMALEATE
     Indication: NON-SMALL CELL LUNG CANCER
     Dosage: 30 MILLIGRAM, ONCE A DAY
     Route: 048

REACTIONS (2)
  - Brain injury [Unknown]
  - Blood glucose increased [Unknown]
